FAERS Safety Report 6172247-8 (Version None)
Quarter: 2009Q2

REPORT INFORMATION
  Report Type: 
  Country: None (occurrence: None)
  Receive Date: 20090427
  Receipt Date: 20090427
  Transmission Date: 20091009
  Serious: Yes (Life-Threatening)
  Sender: FDA-Public Use
  Company Number: None

PATIENT
  Age: 13 Year
  Sex: Male
  Weight: 54.4316 kg

DRUGS (1)
  1. LAMOTRIGINE [Suspect]
     Indication: EPILEPSY
     Dosage: 200 MG BID OROPHARINGEAL
     Route: 049
     Dates: start: 20081211, end: 20090201

REACTIONS (2)
  - PARTIAL SEIZURES [None]
  - PRODUCT SUBSTITUTION ISSUE [None]
